FAERS Safety Report 9756223 (Version 1)
Quarter: 2013Q4

REPORT INFORMATION
  Report Type: Spontaneous
  Country: US (occurrence: US)
  Receive Date: 20131213
  Receipt Date: 20131213
  Transmission Date: 20140711
  Serious: No
  Sender: FDA-Public Use
  Company Number: US-GLAXOSMITHKLINE-A1035669A

PATIENT
  Age: 43 Year
  Sex: Female

DRUGS (1)
  1. NICODERM CQ CLEAR 21MG [Suspect]
     Indication: EX-TOBACCO USER
     Dates: start: 20130722, end: 20130724

REACTIONS (6)
  - Application site pain [Recovered/Resolved]
  - Application site paraesthesia [Recovered/Resolved]
  - Application site hypoaesthesia [Recovered/Resolved]
  - Poor quality sleep [Recovered/Resolved]
  - Palpitations [Recovered/Resolved]
  - Application site pruritus [Recovered/Resolved]
